FAERS Safety Report 9840676 (Version 1)
Quarter: 2013Q4

REPORT INFORMATION
  Report Type: Spontaneous
  Country: US (occurrence: None)
  Receive Date: 20131211
  Receipt Date: 20131211
  Transmission Date: 20140711
  Serious: No
  Sender: FDA-Public Use
  Company Number: SPV1-2008-02179

PATIENT
  Age: 24 Year
  Sex: Male
  Weight: 49 kg

DRUGS (2)
  1. ELAPRASE [Suspect]
     Indication: MUCOPOLYSACCHARIDOSIS II
     Route: 041
     Dates: start: 20070629
  2. HYDROXYZINE HYDROCHLORIDE (HYDROXYZINE HYDROCHLORIDE) [Concomitant]

REACTIONS (3)
  - Dyspnoea [None]
  - Urticaria [None]
  - Infusion related reaction [None]
